FAERS Safety Report 5775166-1 (Version None)
Quarter: 2008Q2

REPORT INFORMATION
  Report Type: 
  Country: None (occurrence: None)
  Receive Date: 20080616
  Receipt Date: 20080616
  Transmission Date: 20081010
  Serious: Yes (Other)
  Sender: FDA-Public Use
  Company Number: None

PATIENT
  Age: 59 Year
  Sex: Male
  Weight: 108.8633 kg

DRUGS (1)
  1. PYRIDOXINE HCL [Suspect]
     Indication: SURGERY
     Dosage: 1 PER DAY PILL WITH LOTS OF WATE
     Dates: start: 20080613, end: 20080613

REACTIONS (4)
  - HEADACHE [None]
  - PALPITATIONS [None]
  - SOMNOLENCE [None]
  - STUPOR [None]
